FAERS Safety Report 8152443-0 (Version None)
Quarter: 2012Q1

REPORT INFORMATION
  Report Type: 
  Country: None (occurrence: None)
  Receive Date: 20120103
  Receipt Date: 20111004
  Transmission Date: 20120608
  Serious: No
  Sender: FDA-Public Use
  Company Number: AE-2011-002043

PATIENT
  Sex: Male

DRUGS (6)
  1. VALTREX [Concomitant]
  2. PEGASYS [Concomitant]
  3. LISINOPRIL [Concomitant]
  4. INCIVEK [Suspect]
     Dosage: 2250 MG (750 MG,3 IN 1 D),ORAL
     Route: 048
     Dates: start: 20110926
  5. RIBAVIRIN [Concomitant]
  6. SLEEPING PILL (SCOPOLAMINE AMINOXIDE HYDROBROMIDE) [Concomitant]

REACTIONS (1)
  - PRURITUS GENERALISED [None]
